FAERS Safety Report 5989260-3 (Version None)
Quarter: 2008Q4

REPORT INFORMATION
  Report Type: 
  Country: None (occurrence: None)
  Receive Date: 20081205
  Receipt Date: 20081125
  Transmission Date: 20090506
  Serious: Yes (Life-Threatening)
  Sender: FDA-Public Use
  Company Number: 000620

PATIENT
  Age: 5 Month
  Sex: Female

DRUGS (8)
  1. BUSULFEX [Suspect]
     Indication: STEM CELL TRANSPLANT
     Dosage: 2.4 ML,  INTRAVENOUS
     Route: 042
     Dates: start: 20070118, end: 20070121
  2. CLONAZEPAM [Concomitant]
  3. ZONISAMIDE [Concomitant]
  4. ETOPOSIDE [Concomitant]
  5. CYCLOPHOSPHAMIDE [Concomitant]
  6. FILGRASTIM (FILGRASTIM) [Concomitant]
  7. METHOTREXATE [Concomitant]
  8. TACROLIMUS [Concomitant]

REACTIONS (10)
  - ACUTE LYMPHOCYTIC LEUKAEMIA RECURRENT [None]
  - BONE MARROW TRANSPLANT [None]
  - NAUSEA [None]
  - NEUTROPENIA [None]
  - PYREXIA [None]
  - RESPIRATORY DISORDER [None]
  - SEPSIS [None]
  - STOMATITIS [None]
  - VENOOCCLUSIVE LIVER DISEASE [None]
  - VOMITING [None]
